FAERS Safety Report 8189807-5 (Version None)
Quarter: 2012Q1

REPORT INFORMATION
  Report Type: 
  Country: None (occurrence: None)
  Receive Date: 20120307
  Receipt Date: 20110621
  Transmission Date: 20120608
  Serious: No
  Sender: FDA-Public Use
  Company Number: US-GLAXOSMITHKLINE-A0933337A

PATIENT
  Sex: Female

DRUGS (2)
  1. REQUIP [Suspect]
     Indication: PARKINSON'S DISEASE
     Route: 065
  2. REQUIP XL [Concomitant]
     Indication: PARKINSON'S DISEASE
     Dates: end: 20110101

REACTIONS (4)
  - MALAISE [None]
  - GENERAL PHYSICAL HEALTH DETERIORATION [None]
  - DRUG EFFECT DECREASED [None]
  - ADVERSE EVENT [None]
